FAERS Safety Report 7446144-1 (Version None)
Quarter: 2011Q2

REPORT INFORMATION
  Report Type: 
  Country: None (occurrence: None)
  Receive Date: 20110429
  Receipt Date: 20110401
  Transmission Date: 20111010
  Serious: Yes (Hospitalization, Disabling)
  Sender: FDA-Public Use
  Company Number: B0711447A

PATIENT
  Sex: Female
  Weight: 56 kg

DRUGS (1)
  1. SERETIDE [Suspect]
     Indication: CHRONIC OBSTRUCTIVE PULMONARY DISEASE
     Route: 065
     Dates: start: 20091201, end: 20110331

REACTIONS (3)
  - DYSPHONIA [None]
  - LEUKOPLAKIA [None]
  - LARYNGEAL OEDEMA [None]
